FAERS Safety Report 20484379 (Version 1)
Quarter: 2022Q1

REPORT INFORMATION
  Report Type: Spontaneous
  Country: TW (occurrence: TW)
  Receive Date: 20220217
  Receipt Date: 20220217
  Transmission Date: 20220423
  Serious: Yes (Hospitalization)
  Sender: FDA-Public Use
  Company Number: TW-PFIZER INC-202200214727

PATIENT
  Age: 53 Year
  Sex: Male

DRUGS (4)
  1. DACOMITINIB [Suspect]
     Active Substance: DACOMITINIB
     Indication: Lung adenocarcinoma stage III
     Dosage: 15 MG
     Dates: start: 20211013
  2. DACOMITINIB [Suspect]
     Active Substance: DACOMITINIB
     Dosage: 30 MG, QD
     Dates: start: 20211021
  3. CYRAMZA [Suspect]
     Active Substance: RAMUCIRUMAB
     Indication: Lung adenocarcinoma stage III
     Dosage: UNK UNK, CYCLIC
     Dates: start: 20210304
  4. CYRAMZA [Suspect]
     Active Substance: RAMUCIRUMAB
     Dosage: 600 MG (11TH CYCLE )
     Dates: start: 20211230

REACTIONS (3)
  - Diarrhoea [Unknown]
  - Onychalgia [Unknown]
  - Paronychia [Unknown]
